FAERS Safety Report 24755940 (Version 2)
Quarter: 2025Q1

REPORT INFORMATION
  Report Type: Spontaneous
  Country: JP (occurrence: JP)
  Receive Date: 20241219
  Receipt Date: 20250115
  Transmission Date: 20250409
  Serious: No
  Sender: NOVARTIS
  Company Number: JP-002147023-NVSJ2024JP014814

PATIENT

DRUGS (1)
  1. SCEMBLIX [Suspect]
     Active Substance: ASCIMINIB HYDROCHLORIDE
     Indication: Product used for unknown indication
     Route: 048

REACTIONS (1)
  - Product storage error [Unknown]
